FAERS Safety Report 13996949 (Version 1)
Quarter: 2017Q3

REPORT INFORMATION
  Report Type: Spontaneous
  Country: RO (occurrence: RO)
  Receive Date: 20170921
  Receipt Date: 20170921
  Transmission Date: 20171128
  Serious: Yes (Life-Threatening)
  Sender: FDA-Public Use
  Company Number: RO-GLAXOSMITHKLINE-RO2017145334

PATIENT
  Age: 3 Year
  Sex: Female

DRUGS (3)
  1. CLARITROMICINA [Concomitant]
     Active Substance: CLARITHROMYCIN
     Dosage: 250 MG, UNK
     Route: 065
  2. ERITROMICINA [Concomitant]
     Dosage: 200 MG, UNK
     Route: 065
  3. ZINNAT [Suspect]
     Active Substance: CEFUROXIME AXETIL
     Indication: NASOPHARYNGITIS
     Dosage: UNK
     Route: 048

REACTIONS (3)
  - Rash [Recovered/Resolved]
  - Pyrexia [Recovered/Resolved]
  - Cyanosis [Recovered/Resolved]
